FAERS Safety Report 25777029 (Version 2)
Quarter: 2025Q3

REPORT INFORMATION
  Report Type: Spontaneous
  Country: US (occurrence: US)
  Receive Date: 20250909
  Receipt Date: 20250923
  Transmission Date: 20251021
  Serious: Yes (Other)
  Sender: AUROBINDO
  Company Number: US-AUROBINDO-AUR-APL-2025-045480

PATIENT
  Age: 73 Year
  Sex: Female
  Weight: 44.4 kg

DRUGS (2)
  1. TRAMADOL [Suspect]
     Active Substance: TRAMADOL
     Indication: Product used for unknown indication
     Route: 065
  2. ZOLPIDEM TARTRATE [Suspect]
     Active Substance: ZOLPIDEM TARTRATE
     Indication: Product used for unknown indication
     Route: 065

REACTIONS (6)
  - Seizure like phenomena [Unknown]
  - Visual impairment [Unknown]
  - Dyspepsia [Unknown]
  - Somnolence [Unknown]
  - Brain fog [Unknown]
  - Adverse drug reaction [Unknown]
